FAERS Safety Report 16041948 (Version 1)
Quarter: 2019Q1

REPORT INFORMATION
  Report Type: Spontaneous
  Country: US (occurrence: US)
  Receive Date: 20190306
  Receipt Date: 20190306
  Transmission Date: 20190418
  Serious: Yes (Other)
  Sender: FDA-Public Use
  Company Number: US-AKORN PHARMACEUTICALS-2018AKN00752

PATIENT
  Age: 26 Year
  Sex: Female
  Weight: 72.56 kg

DRUGS (6)
  1. FLUOXETINE [Concomitant]
     Active Substance: FLUOXETINE HYDROCHLORIDE
  2. ESZOPICLONE. [Concomitant]
     Active Substance: ESZOPICLONE
  3. MYORISAN [Suspect]
     Active Substance: ISOTRETINOIN
     Indication: ACNE
     Dosage: 40 MG, 1X/DAY
     Dates: start: 20180405, end: 20180420
  4. MIRENA [Concomitant]
     Active Substance: LEVONORGESTREL
  5. MELATONIN [Concomitant]
     Active Substance: MELATONIN
  6. PRAZOSIN. [Concomitant]
     Active Substance: PRAZOSIN

REACTIONS (3)
  - Alanine aminotransferase increased [Recovering/Resolving]
  - Off label use [Recovered/Resolved]
  - Aspartate aminotransferase increased [Recovering/Resolving]

NARRATIVE: CASE EVENT DATE: 201804
